FAERS Safety Report 11575886 (Version 1)
Quarter: 2015Q3

REPORT INFORMATION
  Report Type: Spontaneous
  Country: US (occurrence: US)
  Receive Date: 20150930
  Receipt Date: 20150930
  Transmission Date: 20151125
  Serious: Yes (Other)
  Sender: FDA-Public Use
  Company Number: US-ROCHE-1640315

PATIENT
  Age: 66 Year
  Sex: Male

DRUGS (21)
  1. LOPRESSOR [Concomitant]
     Active Substance: METOPROLOL TARTRATE
  2. SPIRIVA [Concomitant]
     Active Substance: TIOTROPIUM BROMIDE MONOHYDRATE
  3. TYLENOL [Concomitant]
     Active Substance: ACETAMINOPHEN
  4. ZOFRAN [Concomitant]
     Active Substance: ONDANSETRON HYDROCHLORIDE
  5. RENVELA [Concomitant]
     Active Substance: SEVELAMER CARBONATE
  6. ROBITUSSIN COUGH AND COLD D [Concomitant]
     Active Substance: DEXTROMETHORPHAN HYDROBROMIDE\GUAIFENESIN\PSEUDOEPHEDRINE HYDROCHLORIDE
  7. APRESOLINE HYDROCHLORIDE [Concomitant]
     Active Substance: HYDRALAZINE HYDROCHLORIDE
  8. RITUXAN [Suspect]
     Active Substance: RITUXIMAB
     Indication: VASCULITIS
     Route: 065
  9. SOLU-MEDROL [Concomitant]
     Active Substance: METHYLPREDNISOLONE SODIUM SUCCINATE
  10. MORPHINE [Concomitant]
     Active Substance: MORPHINE
  11. FLOMAX (UNITED STATES) [Concomitant]
  12. LORTAB (UNITED STATES) [Concomitant]
  13. SYMBICORT [Concomitant]
     Active Substance: BUDESONIDE\FORMOTEROL FUMARATE DIHYDRATE
  14. RITUXAN [Suspect]
     Active Substance: RITUXIMAB
     Indication: ACUTE KIDNEY INJURY
  15. NORVASC [Concomitant]
     Active Substance: AMLODIPINE BESYLATE
  16. LEVOTHROID [Concomitant]
     Active Substance: LEVOTHYROXINE SODIUM
  17. ZEMPLAR [Concomitant]
     Active Substance: PARICALCITOL
  18. DULCOLAX TABLET [Concomitant]
  19. VITAMIN B1 [Concomitant]
     Active Substance: THIAMINE HYDROCHLORIDE
  20. CARAFATE [Concomitant]
     Active Substance: SUCRALFATE
  21. HABITROL [Concomitant]
     Active Substance: NICOTINE

REACTIONS (1)
  - Gastrointestinal haemorrhage [Recovered/Resolved]

NARRATIVE: CASE EVENT DATE: 20150927
